FAERS Safety Report 15190401 (Version 1)
Quarter: 2018Q3

REPORT INFORMATION
  Report Type: Spontaneous
  Country: None (occurrence: US)
  Receive Date: 20180724
  Receipt Date: 20180724
  Transmission Date: 20181010
  Serious: No
  Sender: FDA-Public Use
  Company Number: US-MEDAC PHARMA, INC.-2052654

PATIENT
  Age: 57 Year
  Sex: Female
  Weight: 109.09 kg

DRUGS (2)
  1. HUMIRA [Concomitant]
     Active Substance: ADALIMUMAB
  2. RASUVO [Suspect]
     Active Substance: METHOTREXATE SODIUM
     Indication: RHEUMATOID ARTHRITIS
     Dates: start: 201710

REACTIONS (2)
  - Diarrhoea [Recovering/Resolving]
  - Hepatic enzyme increased [Not Recovered/Not Resolved]
